FAERS Safety Report 17892168 (Version 3)
Quarter: 2021Q4

REPORT INFORMATION
  Report Type: Spontaneous
  Country: DE (occurrence: DE)
  Receive Date: 20200612
  Receipt Date: 20211103
  Transmission Date: 20220304
  Serious: Yes (Hospitalization)
  Sender: FDA-Public Use
  Company Number: DE-002147023-PHHY2019DE123456

PATIENT
  Sex: Female
  Weight: 88 kg

DRUGS (14)
  1. DULOXETINE HYDROCHLORIDE [Suspect]
     Active Substance: DULOXETINE HYDROCHLORIDE
     Indication: Product used for unknown indication
     Dosage: 10 MG, UNK
     Route: 048
     Dates: start: 20190425, end: 20190502
  2. RUXOLITINIB [Suspect]
     Active Substance: RUXOLITINIB
     Indication: Polycythaemia vera
     Dosage: 30 MG, DAILY
     Route: 048
     Dates: start: 20180704, end: 20180724
  3. RUXOLITINIB [Suspect]
     Active Substance: RUXOLITINIB
     Dosage: 40 MG, DAILY
     Route: 048
     Dates: start: 20180725, end: 20190522
  4. RUXOLITINIB [Suspect]
     Active Substance: RUXOLITINIB
     Dosage: 30 MG, DAILY
     Route: 048
     Dates: start: 20190523
  5. ROSICED [Concomitant]
     Indication: Skin disorder
     Dosage: 7.5 MG, QD
     Route: 048
  6. MARCUMAR [Concomitant]
     Active Substance: PHENPROCOUMON
     Indication: Thrombosis
     Dosage: 9 OT, UNKNOWN
     Route: 048
  7. BETNESOL V [Concomitant]
     Indication: Skin disorder
     Dosage: 0.1 %, QW
     Route: 048
  8. CLINDAMYCIN PHOSPHATE\TRETINOIN [Concomitant]
     Active Substance: CLINDAMYCIN PHOSPHATE\TRETINOIN
     Indication: Skin disorder
     Dosage: 10 MG, QD
     Route: 048
  9. PRAMIPEXOL +PHARMA [Concomitant]
     Indication: Parkinson^s disease
     Dosage: 0.18 MG, QD
     Route: 048
  10. PRAMIPEXOL +PHARMA [Concomitant]
     Indication: Restless legs syndrome
  11. VALSARTAN [Concomitant]
     Active Substance: VALSARTAN
     Indication: Hypertension
     Dosage: UNK (1-0-1/2),  UNKNOWN
     Route: 048
  12. GLUCOSAMIN [GLUCOSAMINE HYDROCHLORIDE] [Concomitant]
     Indication: Arthropathy
     Dosage: 1200 OT , UNKNOWN
     Route: 048
  13. DULOXETINE HYDROCHLORIDE [Concomitant]
     Active Substance: DULOXETINE HYDROCHLORIDE
     Indication: Product used for unknown indication
     Dosage: UNK, UNKNOWN
     Route: 065
  14. DOXYDERMA [Concomitant]
     Indication: Skin disorder
     Dosage: 50 MG, DAILY
     Route: 048

REACTIONS (2)
  - Dyspnoea exertional [Recovered/Resolved]
  - Weight increased [Not Recovered/Not Resolved]

NARRATIVE: CASE EVENT DATE: 20190423
